FAERS Safety Report 9366677 (Version 2)
Quarter: 2013Q3

REPORT INFORMATION
  Report Type: Spontaneous
  Country: FR (occurrence: FR)
  Receive Date: 20130625
  Receipt Date: 20130911
  Transmission Date: 20140515
  Serious: Yes (Hospitalization, Other)
  Sender: FDA-Public Use
  Company Number: FR-ELI_LILLY_AND_COMPANY-FR201306006933

PATIENT
  Age: 86 Year
  Sex: Female
  Weight: 58 kg

DRUGS (13)
  1. CYMBALTA [Suspect]
     Indication: DEPRESSION
     Dosage: 60 MG, QD
     Route: 048
     Dates: start: 201301, end: 20130509
  2. CEFPODOXIME [Concomitant]
     Indication: LUNG INFECTION
     Dosage: 100 MG, QD
     Route: 048
     Dates: start: 20130429, end: 20130505
  3. BIPRETERAX                         /01421201/ [Concomitant]
     Dosage: 1.25 DF, QD
  4. MYSOLINE [Concomitant]
     Dosage: 62.5 DF, QD
  5. PARIET [Concomitant]
     Dosage: 1 DF, QD
  6. SERESTA [Concomitant]
     Dosage: 1.5 DF, QD
  7. MOTILIUM                           /00498202/ [Concomitant]
     Indication: NAUSEA
     Dosage: 4 DF, PRN
  8. CALCI-D [Concomitant]
     Dosage: 400 U, QD
  9. MONOTILDIEM [Concomitant]
     Dosage: 1 DF, QD
  10. SPECIAFOLDINE [Concomitant]
     Dosage: 2 DF, QD
  11. KARDEGIC [Concomitant]
     Dosage: 1 DF, QD
  12. TRANSIPEG                          /00754501/ [Concomitant]
     Dosage: 1 DF, QD
  13. EXELON                             /01383201/ [Concomitant]
     Dosage: 1 DF, QD

REACTIONS (15)
  - Liver injury [Recovered/Resolved]
  - Lung infection [Unknown]
  - Craniocerebral injury [Unknown]
  - Fall [Unknown]
  - Pain [Unknown]
  - Pyrexia [Unknown]
  - Amnesia [Unknown]
  - Psychomotor retardation [Unknown]
  - Cholestasis [Unknown]
  - Malnutrition [Unknown]
  - Crystal arthropathy [Recovered/Resolved]
  - Glutamate dehydrogenase increased [Unknown]
  - Hyponatraemia [Unknown]
  - Disorientation [Unknown]
  - Headache [Unknown]
